FAERS Safety Report 16037514 (Version 1)
Quarter: 2019Q1

REPORT INFORMATION
  Report Type: Spontaneous
  Country: GB (occurrence: GB)
  Receive Date: 20190305
  Receipt Date: 20190305
  Transmission Date: 20190418
  Serious: Yes (Hospitalization)
  Sender: FDA-Public Use
  Company Number: GB-TEVA-2019-GB-1018140

PATIENT
  Age: 77 Year

DRUGS (42)
  1. PARACETAMOL [Concomitant]
     Active Substance: ACETAMINOPHEN
     Dosage: 4 GRAM DAILY; FOUR TIMES DAILY
  2. METOLAZONE. [Concomitant]
     Active Substance: METOLAZONE
  3. LACTULOSE. [Concomitant]
     Active Substance: LACTULOSE
     Dosage: 10 ML DAILY; NIGHT. LACTULOSE 3.1-3.7G/5ML
     Route: 048
  4. GLYCERYL TRINITRATE [Concomitant]
     Active Substance: NITROGLYCERIN
     Dosage: DISSOLVE ONE TABLET UNDER THE TONGUE.
  5. ALGESAL [Suspect]
     Active Substance: DIETHYLAMINE SALICYLATE
     Dosage: 3 DOSAGE FORMS DAILY; APPLY TO THE AFFECTED AREA, MASSAGING IN UNTIL CREAM IS FULLY ABSORBED.
     Route: 065
  6. SITAGLIPTIN [Concomitant]
     Active Substance: SITAGLIPTIN
     Dosage: 25 MILLIGRAM DAILY;
  7. DOXYCYCLINE. [Concomitant]
     Active Substance: DOXYCYCLINE
     Dosage: TWO TO BE TAKEN ON THE FIRST DAY THEN ONE TO BE TAKEN EACH DAY
  8. AVAMYS [Concomitant]
     Active Substance: FLUTICASONE FUROATE
     Dosage: 1 DOSAGE FORMS DAILY; IN EACH NOSTRIL. 27.5MICROGRAMS/DOSE
     Route: 045
  9. NASEPTIN [Concomitant]
     Active Substance: CHLORHEXIDINE HYDROCHLORIDE\NEOMYCIN SULFATE
     Dosage: 4 DOSAGE FORMS DAILY; APPLY AS DIRECTED
  10. ATORVASTATIN [Concomitant]
     Active Substance: ATORVASTATIN
     Dosage: 20 MILLIGRAM DAILY; NIGHT
  11. HYDROMOL CREAM [Concomitant]
  12. WARFARIN [Suspect]
     Active Substance: WARFARIN
     Indication: ATRIAL FIBRILLATION
     Dosage: 8 MILLIGRAM DAILY;
     Route: 065
  13. MIDAZOLAM [Concomitant]
     Active Substance: MIDAZOLAM HYDROCHLORIDE
     Dosage: 10MG/2ML
     Route: 051
  14. MONTELUKAST [Concomitant]
     Active Substance: MONTELUKAST SODIUM
     Dosage: 10 MILLIGRAM DAILY; NIGHT
  15. METHYLPHENIDATE. [Concomitant]
     Active Substance: METHYLPHENIDATE
  16. OXYCODONE [Concomitant]
     Active Substance: OXYCODONE
     Indication: PAIN
     Dosage: 2.5 TO 5ML. 5MG/5ML
     Route: 048
  17. ETOMIDATE. [Concomitant]
     Active Substance: ETOMIDATE
  18. BISOPROLOL [Concomitant]
     Active Substance: BISOPROLOL
     Dosage: 5 MILLIGRAM DAILY; MORNING
  19. DIGOXIN. [Concomitant]
     Active Substance: DIGOXIN
     Dosage: 62.5 MICROGRAM DAILY;
  20. TRAMADOL. [Concomitant]
     Active Substance: TRAMADOL
     Dosage: 400 MILLIGRAM DAILY;
  21. DEXMETHYLPHENIDATE [Concomitant]
     Active Substance: DEXMETHYLPHENIDATE HYDROCHLORIDE
  22. BUMETANIDE. [Concomitant]
     Active Substance: BUMETANIDE
     Dosage: 5 MILLIGRAM DAILY; THREE TO BE TAKEN IN THE MORNING AND TWO AT LUNCHTIME
  23. RANITIDINE. [Concomitant]
     Active Substance: RANITIDINE
     Dosage: 150 MILLIGRAM DAILY; MORNING
  24. SODIUM FUSIDATE [Concomitant]
     Active Substance: FUSIDATE SODIUM
  25. LEVOMEPROMAZINE [Concomitant]
     Active Substance: LEVOMEPROMAZINE
     Dosage: 25MG/1ML
     Route: 051
  26. TRIMBOW [Concomitant]
     Active Substance: BECLOMETHASONE DIPROPIONATE\FORMOTEROL FUMARATE\GLYCOPYRROLATE
     Dosage: 4 DOSAGE FORMS DAILY; PUFFS. 87MICROGRAMS/DOSE / 5MICROGRAMS/DOSE / 9MICROGRAMS/DOSE
     Route: 055
  27. DIPROBASE [Concomitant]
     Active Substance: CHLOROCRESOL
     Dosage: APPLY TO THE SKIN FOUR TIMES A DAY.
  28. BISOPROLOL [Concomitant]
     Active Substance: BISOPROLOL
     Dosage: 2.5 MILLIGRAM DAILY; MORNING
  29. CASSIA [Concomitant]
     Dosage: 15 MILLIGRAM DAILY; NIGHT
  30. MORPHINE [Concomitant]
     Active Substance: MORPHINE
     Dosage: 10MG/1ML
     Route: 051
  31. IOPODATE SODIUM [Concomitant]
  32. DOCUSATE [Concomitant]
     Active Substance: DOCUSATE
     Dosage: 400 MILLIGRAM DAILY;
  33. NICORANDIL [Concomitant]
     Active Substance: NICORANDIL
     Dosage: 40 MILLIGRAM DAILY;
  34. CHEMYDUR XL [Concomitant]
     Active Substance: ISOSORBIDE MONONITRATE
     Dosage: 120 MILLIGRAM DAILY; MORNING
  35. NOVOMIX [Concomitant]
     Active Substance: INSULIN ASPART
     Dosage: 16 IU (INTERNATIONAL UNIT) DAILY; 100UNITS/ML. 3ML IN PRE-FILLED PEN
  36. TRANSVASIN [Concomitant]
     Dosage: 2 DOSAGE FORMS DAILY; APPLY TO JOINTS
  37. HYDROCORTISONE. [Concomitant]
     Active Substance: HYDROCORTISONE
  38. POTASSIUM IODATE [Concomitant]
     Active Substance: POTASSIUM IODATE
  39. SALBUTAMOL [Concomitant]
     Active Substance: ALBUTEROL
     Route: 055
  40. GRUNENTHAL  VERSATIS [Concomitant]
     Dosage: APPLY FOR UP TO 12 HOURS, FOLLOWED BY A 12-HOUR PLASTER-FREE PERIOD AS DIRECTED.
  41. SPIRONOLACTONE. [Concomitant]
     Active Substance: SPIRONOLACTONE
     Dosage: 25 MILLIGRAM DAILY;
  42. PERMETHRIN. [Concomitant]
     Active Substance: PERMETHRIN
     Dosage: TO BE USED AS DIRECTED

REACTIONS (1)
  - Epistaxis [Unknown]
